FAERS Safety Report 5050261-3 (Version None)
Quarter: 2006Q2

REPORT INFORMATION
  Report Type: 
  Country: None (occurrence: None)
  Receive Date: 20060607
  Receipt Date: 20060626
  Transmission Date: 20061013
  Serious: Yes (Other)
  Sender: FDA-Public Use
  Company Number: 2006US001396

PATIENT
  Age: 16 Year
  Sex: Female

DRUGS (5)
  1. PROGRAF [Suspect]
     Indication: PROPHYLAXIS AGAINST TRANSPLANT REJECTION
     Dosage: ORAL
     Route: 048
  2. MYCOPHENOLATE SODIUM (MYCOPHENOLATE SODIUM) [Concomitant]
  3. PREDNISONE TAB [Concomitant]
  4. ZENAPAX [Concomitant]
  5. LEFLUNOMIDE [Concomitant]

REACTIONS (3)
  - KIDNEY TRANSPLANT REJECTION [None]
  - POLYOMAVIRUS-ASSOCIATED NEPHROPATHY [None]
  - TRANSPLANT REJECTION [None]
